FAERS Safety Report 16591112 (Version 2)
Quarter: 2019Q3

REPORT INFORMATION
  Report Type: Report from Study
  Country: US (occurrence: US)
  Receive Date: 20190718
  Receipt Date: 20190718
  Transmission Date: 20191004
  Serious: Yes (Other)
  Sender: FDA-Public Use
  Company Number: US-BAYER-2019-130827

PATIENT
  Age: 17 Year
  Sex: Male

DRUGS (1)
  1. GADOXETIC ACID DISODIUM [Suspect]
     Active Substance: GADOXETATE DISODIUM
     Indication: HEPATOBILIARY SCAN
     Dosage: UNK

REACTIONS (1)
  - Respiration abnormal [None]
